FAERS Safety Report 12949861 (Version 1)
Quarter: 2016Q4

REPORT INFORMATION
  Report Type: Spontaneous
  Country: BR (occurrence: BR)
  Receive Date: 20161117
  Receipt Date: 20161117
  Transmission Date: 20170207
  Serious: Yes (Other)
  Sender: FDA-Public Use
  Company Number: BR-PFIZER INC-2015222747

PATIENT
  Age: 42 Year
  Sex: Female
  Weight: 59 kg

DRUGS (3)
  1. FRONTAL SL [Suspect]
     Active Substance: ALPRAZOLAM
     Dosage: UNK
  2. FRONTAL XR [Suspect]
     Active Substance: ALPRAZOLAM
     Indication: HYPERTENSION
     Dosage: 0.5 MG, 1 TABLET AT NIGHT
     Route: 048
     Dates: start: 2014
  3. BENICAR [Concomitant]
     Active Substance: OLMESARTAN MEDOXOMIL
     Indication: HYPERTENSION
     Dosage: 40MG, 1 TABLET A DAY
     Dates: start: 2014

REACTIONS (3)
  - Product use issue [Unknown]
  - Drug dependence [Unknown]
  - Drug withdrawal syndrome [Unknown]
